FAERS Safety Report 6869761-6 (Version None)
Quarter: 2010Q3

REPORT INFORMATION
  Report Type: 
  Country: None (occurrence: None)
  Receive Date: 20100722
  Receipt Date: 20080927
  Transmission Date: 20110219
  Serious: No
  Sender: FDA-Public Use
  Company Number: US-PFIZER INC-2008070034

PATIENT
  Sex: Female
  Weight: 163.29 kg

DRUGS (7)
  1. CHANTIX [Suspect]
     Indication: SMOKING CESSATION THERAPY
     Route: 048
     Dates: start: 20080701
  2. AROMASIN [Concomitant]
  3. LYRICA [Concomitant]
  4. XANAX [Concomitant]
  5. CELEXA [Concomitant]
  6. NAPROXEN [Concomitant]
  7. MONTELUKAST SODIUM [Concomitant]

REACTIONS (2)
  - INSOMNIA [None]
  - SLEEP DISORDER [None]
